FAERS Safety Report 19316350 (Version 1)
Quarter: 2021Q2

REPORT INFORMATION
  Report Type: Spontaneous
  Country: US (occurrence: US)
  Receive Date: 20210527
  Receipt Date: 20210527
  Transmission Date: 20210717
  Serious: Yes (Other)
  Sender: FDA-Public Use
  Company Number: US-GLAXOSMITHKLINE-USCH2021032218

PATIENT
  Age: 7 Year
  Sex: Female

DRUGS (1)
  1. CHILDRENS ROBITUSSIN COUGH AND COLD CF [Suspect]
     Active Substance: DEXTROMETHORPHAN HYDROBROMIDE\GUAIFENESIN\PHENYLEPHRINE HYDROCHLORIDE
     Indication: PYREXIA
     Dosage: UNK

REACTIONS (5)
  - Product use complaint [Unknown]
  - Vomiting [Unknown]
  - Heart rate increased [Unknown]
  - Insomnia [Unknown]
  - Hallucination [Unknown]
